FAERS Safety Report 8177283-8 (Version None)
Quarter: 2012Q1

REPORT INFORMATION
  Report Type: 
  Country: None (occurrence: None)
  Receive Date: 20120301
  Receipt Date: 20120228
  Transmission Date: 20120608
  Serious: Yes (Death, Other)
  Sender: FDA-Public Use
  Company Number: NL-ROCHE-1017916

PATIENT
  Sex: Male
  Weight: 80 kg

DRUGS (13)
  1. NIFEDIPINE [Concomitant]
     Dates: start: 20110306
  2. ALFACALCIDOL [Concomitant]
     Dates: start: 20101030
  3. PREDNISONE TAB [Suspect]
     Indication: KIDNEY TRANSPLANT REJECTION
     Dates: start: 20101004, end: 20111101
  4. TACROLIMUS [Suspect]
     Indication: KIDNEY TRANSPLANT REJECTION
     Dosage: TIMES PER 750000 MG
     Route: 048
     Dates: start: 20101005, end: 20101201
  5. RANITIDINE HCL [Concomitant]
     Dates: start: 20101130
  6. MABTHERA [Suspect]
     Indication: RENAL TRANSPLANT
  7. MYCOPHENOLATE MOFETIL (CELLCEPT) [Suspect]
     Indication: KIDNEY TRANSPLANT REJECTION
     Dates: start: 20101005, end: 20101115
  8. MYCOPHENOLATE MOFETIL (CELLCEPT) [Suspect]
     Dates: start: 20110118, end: 20110204
  9. METOPROLOL SUCCINATE [Concomitant]
     Dates: start: 20080101
  10. CALCIUM CARBONATE [Concomitant]
     Dates: start: 20101022
  11. SIROLIMUS [Suspect]
     Indication: KIDNEY TRANSPLANT REJECTION
     Dosage: 1 DOSE FORM, VARIABLE THROUGH LEVEL 5-10 UG/L
     Dates: start: 20101201, end: 20111101
  12. MYCOPHENOLATE MOFETIL (CELLCEPT) [Suspect]
     Dates: start: 20110217, end: 20111207
  13. VORICONAZOLE [Concomitant]
     Dates: start: 20110421

REACTIONS (4)
  - NEPHROPATHY TOXIC [None]
  - PANCYTOPENIA [None]
  - GENERAL PHYSICAL HEALTH DETERIORATION [None]
  - PROGRESSIVE MULTIFOCAL LEUKOENCEPHALOPATHY [None]
